FAERS Safety Report 16113740 (Version 1)
Quarter: 2019Q1

REPORT INFORMATION
  Report Type: Spontaneous
  Country: PT (occurrence: PT)
  Receive Date: 20190325
  Receipt Date: 20190325
  Transmission Date: 20190418
  Serious: Yes (Hospitalization, Other)
  Sender: FDA-Public Use
  Company Number: PT-PFIZER INC-2019127822

PATIENT
  Age: 39 Year
  Sex: Male

DRUGS (5)
  1. RISPERIDONE. [Interacting]
     Active Substance: RISPERIDONE
     Indication: SCHIZOPHRENIA
     Dosage: UNK
  2. AZITHROMYCIN ANHYDROUS. [Suspect]
     Active Substance: AZITHROMYCIN ANHYDROUS
     Dosage: UNK
  3. AMLODIPINE/PERINDOPRIL [Concomitant]
     Dosage: UNK
  4. CHLORPROMAZINE. [Interacting]
     Active Substance: CHLORPROMAZINE
     Indication: SCHIZOPHRENIA
     Dosage: UNK
  5. FLUVOXAMINE [Interacting]
     Active Substance: FLUVOXAMINE
     Indication: SCHIZOPHRENIA
     Dosage: UNK

REACTIONS (2)
  - Drug interaction [Unknown]
  - Rhabdomyolysis [Unknown]
